FAERS Safety Report 6525140-2 (Version None)
Quarter: 2009Q4

REPORT INFORMATION
  Report Type: 
  Country: None (occurrence: None)
  Receive Date: 20091223
  Receipt Date: 20091214
  Transmission Date: 20100525
  Serious: Yes (Other)
  Sender: FDA-Public Use
  Company Number: 2009SP041343

PATIENT
  Age: 51 Year
  Sex: Female

DRUGS (7)
  1. MIRTAZAPINE [Suspect]
     Indication: DEPRESSION
     Dosage: 3.75 MG; QD; PO
     Route: 048
     Dates: start: 20091201, end: 20091204
  2. VALPROATE SODIUM [Concomitant]
  3. ZOLPIDEM TARTRATE [Concomitant]
  4. QUAZEPAM [Concomitant]
  5. ETIZOLAM [Concomitant]
  6. TOLEDOMIN [Concomitant]
  7. AMOXAN [Concomitant]

REACTIONS (3)
  - AGGRESSION [None]
  - CONDITION AGGRAVATED [None]
  - FEELING JITTERY [None]
